FAERS Safety Report 8816284 (Version 2)
Quarter: 2012Q4

REPORT INFORMATION
  Report Type: 
  Country: GB (occurrence: GB)
  Receive Date: 20121001
  Receipt Date: 20121011
  Transmission Date: 20130627
  Serious: Yes (Other)
  Sender: FDA-Public Use
  Company Number: GB-RANBAXY-2012R1-60391

PATIENT
  Age: 78 Year
  Sex: Female
  Weight: 50 kg

DRUGS (6)
  1. RISPERIDONE [Suspect]
     Indication: SCHIZOPHRENIA
     Dosage: 1 mg, bid
     Route: 048
     Dates: start: 20120606
  2. RISPERIDONE [Suspect]
     Dosage: 2 mg, bid
     Route: 048
     Dates: end: 20120518
  3. RISPERIDONE [Suspect]
     Dosage: 0.5 mg, bid
     Route: 048
  4. XEPLION [Suspect]
     Indication: SCHIZOPHRENIA
     Dosage: UNK
     Route: 030
     Dates: start: 20120615
  5. XEPLION [Suspect]
     Dosage: UNK
     Route: 030
     Dates: start: 20120518
  6. XEPLION [Suspect]
     Dosage: UNK
     Route: 030
     Dates: start: 20120525

REACTIONS (3)
  - Inappropriate schedule of drug administration [Unknown]
  - Incorrect dose administered [Unknown]
  - Psychotic disorder [Not Recovered/Not Resolved]
